FAERS Safety Report 20983066 (Version 1)
Quarter: 2022Q2

REPORT INFORMATION
  Report Type: Spontaneous
  Country: BR (occurrence: BR)
  Receive Date: 20220620
  Receipt Date: 20220620
  Transmission Date: 20220721
  Serious: Yes (Other)
  Sender: FDA-Public Use
  Company Number: BR-ORGANON-O2206BRA001744

PATIENT
  Sex: Female
  Weight: 83 kg

DRUGS (1)
  1. ETONOGESTREL [Suspect]
     Active Substance: ETONOGESTREL
     Dosage: 1 IMPLANT IN ARM
     Route: 059
     Dates: start: 20210525

REACTIONS (4)
  - Device expulsion [Not Recovered/Not Resolved]
  - Erythema [Unknown]
  - Implant site injury [Unknown]
  - Implant site pain [Unknown]

NARRATIVE: CASE EVENT DATE: 20220601
